FAERS Safety Report 9800185 (Version 2)
Quarter: 2014Q1

REPORT INFORMATION
  Report Type: Spontaneous
  Country: JP (occurrence: JP)
  Receive Date: 20140106
  Receipt Date: 20140128
  Transmission Date: 20141002
  Serious: Yes (Other)
  Sender: FDA-Public Use
  Company Number: JP-MYLANLABS-2014S1000076

PATIENT
  Age: 42 Year
  Sex: Female

DRUGS (14)
  1. EPIRUBICIN [Suspect]
     Indication: BREAST CANCER
     Route: 041
     Dates: start: 20130710, end: 20131024
  2. EPIRUBICIN [Suspect]
     Indication: BREAST CANCER
     Route: 041
     Dates: start: 20131104, end: 20131104
  3. ENDOXAN [Suspect]
     Indication: BREAST CANCER
     Dosage: TOTAL DOSE 4000MG
     Route: 042
     Dates: start: 20130710, end: 20131024
  4. ENDOXAN [Suspect]
     Indication: BREAST CANCER
     Route: 042
     Dates: start: 20131104, end: 20131104
  5. 5-FU [Suspect]
     Indication: BREAST CANCER
     Dosage: TOTAL DOSE 4500MG
     Route: 042
     Dates: start: 20130710, end: 20131104
  6. DECADRON [Suspect]
     Indication: CHEMOTHERAPY
     Dosage: TOTAL DOSE 40MG
     Route: 042
     Dates: start: 20130710, end: 20131104
  7. PROEMEND [Suspect]
     Indication: CHEMOTHERAPY
     Dosage: TOTAL DOSE 750MG
     Route: 042
  8. NASEA [Suspect]
     Indication: CHEMOTHERAPY
     Dosage: TOTAL DOSE 1.5MG
     Route: 048
  9. ENDOXAN [Concomitant]
     Indication: BREAST CANCER
     Route: 041
     Dates: start: 20130710, end: 20131024
  10. 5-FU [Concomitant]
     Indication: BREAST CANCER
     Route: 041
     Dates: start: 20130710, end: 20131104
  11. ENDOXAN [Concomitant]
     Indication: BREAST CANCER
     Route: 041
     Dates: start: 20131104, end: 20131104
  12. DECADRON [Concomitant]
     Indication: CHEMOTHERAPY
     Route: 041
     Dates: start: 20130710, end: 20131104
  13. NASEA [Concomitant]
     Indication: CHEMOTHERAPY
     Route: 048
  14. PROEMEND [Concomitant]
     Indication: CHEMOTHERAPY
     Route: 041

REACTIONS (1)
  - Hepatic function abnormal [Recovering/Resolving]
